FAERS Safety Report 8966435 (Version 1)
Quarter: 2012Q4

REPORT INFORMATION
  Report Type: Report from Study
  Country: DK (occurrence: DK)
  Receive Date: 20121217
  Receipt Date: 20121217
  Transmission Date: 20130627
  Serious: Yes (Life-Threatening, Hospitalization)
  Sender: FDA-Public Use
  Company Number: DK-ELI_LILLY_AND_COMPANY-DK201212003620

PATIENT
  Age: 70 Year
  Sex: Female
  Weight: 48 kg

DRUGS (19)
  1. GEMCITABINE HYDROCHLORIDE [Suspect]
     Indication: PANCREATIC CARCINOMA METASTATIC
     Dosage: 1600 mg, weekly (1/W)
     Route: 042
     Dates: start: 20100122, end: 20100208
  2. GEMCITABINE HYDROCHLORIDE [Suspect]
     Dosage: 1600 mg, UNK
     Route: 042
     Dates: start: 20100215
  3. TARCEVA [Suspect]
     Indication: PANCREATIC CARCINOMA METASTATIC
     Dosage: UNK
     Route: 048
     Dates: start: 20100122, end: 20100209
  4. TARCEVA [Suspect]
     Dosage: UNK
     Route: 048
     Dates: start: 20100211
  5. FENTANYL [Concomitant]
     Dosage: 50 ug, every 3 days
     Dates: start: 2009, end: 20100208
  6. FENTANYL [Concomitant]
     Dosage: 75 ug, every 3 days
     Dates: start: 20100208, end: 20100223
  7. FENTANYL [Concomitant]
     Dosage: 75 ug, every 2 days
     Dates: start: 20100223
  8. NORTRIPTYLINE [Concomitant]
     Dosage: 25 mg, UNK
     Route: 048
     Dates: start: 20100118
  9. AMITRIPTYLINE [Concomitant]
     Dosage: 25 mg, UNK
     Dates: start: 20100118
  10. BISACODYL [Concomitant]
     Dosage: 10 mg, UNK
     Dates: start: 20100118
  11. BISACODYL [Concomitant]
     Dosage: 10 mg, UNK
     Dates: start: 20100212
  12. MAGNESIA [Concomitant]
     Dosage: 1000 mg, UNK
     Dates: start: 20100118
  13. CREON [Concomitant]
     Dosage: 160000 IU, UNK
     Dates: start: 20100202, end: 20100223
  14. CREON [Concomitant]
     Dosage: 30000 to 60000 IU
     Dates: start: 20100223
  15. EMPERAL [Concomitant]
     Dosage: UNK, prn
     Dates: start: 20100202
  16. MOVICOL [Concomitant]
     Dosage: UNK, prn
     Dates: start: 20100118
  17. AMLODIPIN                          /00972401/ [Concomitant]
     Dosage: 5 mg, UNK
  18. CORODIL [Concomitant]
     Dosage: 20 mg, UNK
  19. CENTYL K [Concomitant]
     Dosage: 1 UNK, UNK

REACTIONS (3)
  - Dehydration [Recovered/Resolved]
  - Decreased appetite [Recovered/Resolved with Sequelae]
  - General physical health deterioration [Recovered/Resolved]
